FAERS Safety Report 9799696 (Version 3)
Quarter: 2015Q3

REPORT INFORMATION
  Report Type: Spontaneous
  Country: US (occurrence: US)
  Receive Date: 20140106
  Receipt Date: 20150806
  Transmission Date: 20151125
  Serious: No
  Sender: FDA-Public Use
  Company Number: US-GILEAD-2010-0031830

PATIENT
  Age: 76 Year
  Sex: Female
  Weight: 82.55 kg

DRUGS (8)
  1. PRAVACHOL [Concomitant]
     Active Substance: PRAVASTATIN SODIUM
  2. CORTISONE [Concomitant]
     Active Substance: CORTISONE\HYDROCORTISONE
  3. LETAIRIS [Suspect]
     Active Substance: AMBRISENTAN
     Indication: PULMONARY ARTERIAL HYPERTENSION
     Route: 048
     Dates: start: 20100430
  4. FLEXERIL [Concomitant]
     Active Substance: CYCLOBENZAPRINE HYDROCHLORIDE
  5. LASIX [Concomitant]
     Active Substance: FUROSEMIDE
  6. ATROPINE SULFATE/DIPHENOXYLATE HYDROCHLORIDE [Concomitant]
  7. METOPROLOL TARTRATE. [Concomitant]
     Active Substance: METOPROLOL TARTRATE
  8. PARACETAMOL/HYDROCODONE BITARTRATE [Concomitant]

REACTIONS (3)
  - Contusion [Unknown]
  - Pain in extremity [Unknown]
  - Nasal congestion [Unknown]
